FAERS Safety Report 14910131 (Version 3)
Quarter: 2018Q3

REPORT INFORMATION
  Report Type: Spontaneous
  Country: CA (occurrence: CA)
  Receive Date: 20180517
  Receipt Date: 20180918
  Transmission Date: 20181010
  Serious: Yes (Other)
  Sender: FDA-Public Use
  Company Number: PHHY2018CA008798

PATIENT
  Sex: Female

DRUGS (1)
  1. DUOTRAV PQ [Suspect]
     Active Substance: TIMOLOL\TRAVOPROST
     Indication: GLAUCOMA
     Dosage: UNK
     Route: 047
     Dates: end: 201807

REACTIONS (6)
  - Retinal tear [Unknown]
  - Eye pruritus [Unknown]
  - Pain in extremity [Unknown]
  - Product dropper issue [Unknown]
  - Dyspnoea [Unknown]
  - Eye irritation [Unknown]

NARRATIVE: CASE EVENT DATE: 2017
